FAERS Safety Report 4763296-2 (Version None)
Quarter: 2005Q3

REPORT INFORMATION
  Report Type: 
  Country: None (occurrence: None)
  Receive Date: 20050826
  Receipt Date: 20041026
  Transmission Date: 20060218
  Serious: Yes (Death, Other)
  Sender: FDA-Public Use
  Company Number: USA-2003-0011361

PATIENT
  Age: 22 Year
  Sex: Male
  Weight: 106.1 kg

DRUGS (4)
  1. OXYCONTIN [Suspect]
     Indication: PAIN
  2. ALPRAZOLAM [Suspect]
  3. PROPOXYPHENE HCL [Suspect]
  4. ETHANOL (ETHANOL) [Suspect]

REACTIONS (7)
  - ACCIDENTAL OVERDOSE [None]
  - CARDIAC ARREST [None]
  - DRUG ABUSER [None]
  - EMOTIONAL DISTRESS [None]
  - INFLUENZA LIKE ILLNESS [None]
  - MULTIPLE DRUG OVERDOSE ACCIDENTAL [None]
  - PAIN [None]
